FAERS Safety Report 7149682-4 (Version None)
Quarter: 2010Q4

REPORT INFORMATION
  Report Type: 
  Country: None (occurrence: None)
  Receive Date: 20101209
  Receipt Date: 20101125
  Transmission Date: 20110411
  Serious: Yes (Hospitalization)
  Sender: FDA-Public Use
  Company Number: FR-AMGEN-FRASP2010000106

PATIENT

DRUGS (5)
  1. ENBREL [Suspect]
     Indication: RHEUMATOID ARTHRITIS
     Dosage: UNKNOWN
     Route: 058
     Dates: start: 20080801, end: 20100101
  2. METHOTREXATE SODIUM [Suspect]
     Indication: RHEUMATOID ARTHRITIS
     Dosage: 15 MG, QWK
     Route: 042
     Dates: start: 20080801
  3. CORTANCYL [Suspect]
     Indication: RHEUMATOID ARTHRITIS
     Dosage: 5 MG, QD
     Route: 048
  4. SPECIAFOLDINE [Concomitant]
     Indication: ANAEMIA
     Dosage: 10 MG, QWK
  5. PROGESTERONE W/ESTROGENS [Concomitant]
     Indication: CONTRACEPTION
     Dosage: UNK
     Dates: end: 20100910

REACTIONS (1)
  - THROMBOPHLEBITIS [None]
